FAERS Safety Report 5445036-7 (Version None)
Quarter: 2007Q3

REPORT INFORMATION
  Report Type: 
  Country: None (occurrence: None)
  Receive Date: 20070906
  Receipt Date: 20070824
  Transmission Date: 20080115
  Serious: Yes (Hospitalization)
  Sender: FDA-Public Use
  Company Number: BR-ELI_LILLY_AND_COMPANY-BR200709000327

PATIENT
  Sex: Female
  Weight: 4.456 kg

DRUGS (2)
  1. PROZAC [Suspect]
     Dosage: UNK, UNKNOWN
     Route: 064
  2. PROZAC [Suspect]
     Dosage: UNK, UNKNOWN
     Route: 063

REACTIONS (5)
  - DRUG EXPOSURE DURING PREGNANCY [None]
  - DRUG EXPOSURE VIA BREAST MILK [None]
  - HYPERINSULINISM [None]
  - HYPOGLYCAEMIA [None]
  - LARGE FOR DATES BABY [None]
